FAERS Safety Report 14549321 (Version 1)
Quarter: 2018Q1

REPORT INFORMATION
  Report Type: Spontaneous
  Country: NL (occurrence: NL)
  Receive Date: 20180220
  Receipt Date: 20180220
  Transmission Date: 20180509
  Serious: Yes (Congenital Anomaly)
  Sender: FDA-Public Use
  Company Number: NL-TEVA-2018-NL-857208

PATIENT

DRUGS (3)
  1. AZATHIOPRINE TABLET 100 MG (MILLIGRAM) [Suspect]
     Active Substance: AZATHIOPRINE
     Indication: RENAL TRANSPLANT
     Dosage: 100 MILLIGRAM DAILY; ONCE DAILY. START DATE AND END DATE WERE ASKED BUT UNKNOWN
     Route: 064
  2. PREDNISOLON TABLET 5 MG (MILLIGRAM) [Suspect]
     Active Substance: PREDNISOLONE
     Indication: RENAL TRANSPLANT
     Dosage: 5 MILLIGRAM DAILY; 1 TIME A DAY 5 MG; START DATE AND END DATE WERE ASKED BUT UNKNOWN.
     Route: 064
  3. PROGRAFT (TACROLIMUS) CAPSULE 1 MG (MILLIGRAM) [Suspect]
     Active Substance: TACROLIMUS
     Indication: RENAL TRANSPLANT
     Dosage: 4 MILLIGRAM DAILY; TWICE DAILY 2 MG. START DATE AND END DATE WERE ASKED BUT UNKNOWN
     Route: 064

REACTIONS (2)
  - Talipes [Not Recovered/Not Resolved]
  - Foetal exposure during pregnancy [Unknown]
